FAERS Safety Report 9565592 (Version 2)
Quarter: 2013Q3

REPORT INFORMATION
  Report Type: Spontaneous
  Country: FR (occurrence: FR)
  Receive Date: 20130930
  Receipt Date: 20130930
  Transmission Date: 20140515
  Serious: Yes (Hospitalization, Other)
  Sender: FDA-Public Use
  Company Number: FR-ABBVIE-11P-056-0733058-00

PATIENT
  Age: 48 Year
  Sex: Male

DRUGS (5)
  1. NORVIR TABLETS [Suspect]
     Indication: HIV INFECTION
     Route: 048
     Dates: start: 20110302
  2. RALTEGRAVIR [Suspect]
     Indication: HIV INFECTION
     Dosage: UNKNOWN
     Route: 048
     Dates: start: 20090217, end: 20110301
  3. TRUVADA [Suspect]
     Indication: HIV INFECTION
     Dosage: 200 MG/245 MG
     Route: 048
     Dates: start: 20090217, end: 20110301
  4. ETRAVIRINE [Suspect]
     Indication: HIV INFECTION
     Dosage: 400 MG DAILY
     Route: 048
     Dates: start: 20110302
  5. DARUNAVIR [Suspect]
     Indication: HIV INFECTION
     Route: 048
     Dates: start: 20110302

REACTIONS (5)
  - Diabetes mellitus [Not Recovered/Not Resolved]
  - Asthenia [Unknown]
  - Polyuria [Unknown]
  - Visual impairment [Unknown]
  - Sexual dysfunction [Unknown]
